FAERS Safety Report 5849607-5 (Version None)
Quarter: 2008Q3

REPORT INFORMATION
  Report Type: 
  Country: None (occurrence: None)
  Receive Date: 20080815
  Receipt Date: 20080806
  Transmission Date: 20090109
  Serious: Yes (Hospitalization)
  Sender: FDA-Public Use
  Company Number: GXKR2008JP03905

PATIENT
  Age: 79 Year
  Sex: Male

DRUGS (4)
  1. ESANBUTOL (NGX) (ETHAMBUTOL) TABLET [Suspect]
     Indication: TUBERCULOUS PLEURISY
     Dosage: 2 DF/DAY,ORAL
     Route: 048
     Dates: start: 20080418
  2. RIFAMPICIN [Suspect]
     Indication: TUBERCULOUS PLEURISY
     Dosage: 3 DF/DAY,ORAL
     Route: 048
     Dates: start: 20080418
  3. PYRAZINAMIDE [Suspect]
     Indication: TUBERCULOUS PLEURISY
     Dosage: 1.5 G/DAY,ORAL
     Route: 048
     Dates: start: 20080418
  4. ISONIAZID [Suspect]
     Indication: TUBERCULOUS PLEURISY
     Dosage: 3 DF/DAY,ORAL
     Route: 048
     Dates: start: 20080418

REACTIONS (5)
  - ANGIOEDEMA [None]
  - DYSPHONIA [None]
  - LARYNGEAL OEDEMA [None]
  - PHARYNGEAL OEDEMA [None]
  - RESPIRATORY DISTRESS [None]
